FAERS Safety Report 8417262-6 (Version None)
Quarter: 2012Q2

REPORT INFORMATION
  Report Type: 
  Country: None (occurrence: None)
  Receive Date: 20120606
  Receipt Date: 20120604
  Transmission Date: 20120825
  Serious: No
  Sender: FDA-Public Use
  Company Number: US-BAYER-2012-055409

PATIENT
  Age: 48 Year
  Sex: Female
  Weight: 68.027 kg

DRUGS (6)
  1. BETASERON [Suspect]
     Dosage: 0.25 MG, QOD
     Route: 058
  2. LEVOTHYROXINE SODIUM [Concomitant]
     Dosage: 100 ?G, UNK
  3. CALCIUM [Concomitant]
     Dosage: 500
  4. VITAMIN D [Concomitant]
     Dosage: 1000 U, UNK
  5. VITAMIN E [Concomitant]
     Dosage: 400 U, UNK
  6. FISH OIL [Concomitant]

REACTIONS (1)
  - INJECTION SITE PAIN [None]
